FAERS Safety Report 13207391 (Version 1)
Quarter: 2017Q1

REPORT INFORMATION
  Report Type: Spontaneous
  Country: US (occurrence: US)
  Receive Date: 20170209
  Receipt Date: 20170209
  Transmission Date: 20170428
  Serious: Yes (Disabling)
  Sender: FDA-Public Use
  Company Number: None

PATIENT
  Age: 61 Year
  Sex: Male
  Weight: 74.2 kg

DRUGS (1)
  1. LEVOFLOXACIN. [Suspect]
     Active Substance: LEVOFLOXACIN
     Indication: INFECTION PROPHYLAXIS
     Route: 048
     Dates: start: 20161217, end: 20161227

REACTIONS (6)
  - Decreased activity [None]
  - Pain in extremity [None]
  - Tendon rupture [None]
  - Tendon disorder [None]
  - Muscle rupture [None]
  - Tendon discomfort [None]

NARRATIVE: CASE EVENT DATE: 20161225
